FAERS Safety Report 8108847-5 (Version None)
Quarter: 2012Q1

REPORT INFORMATION
  Report Type: 
  Country: None (occurrence: None)
  Receive Date: 20120202
  Receipt Date: 20120131
  Transmission Date: 20120608
  Serious: Yes (Other)
  Sender: FDA-Public Use
  Company Number: US-PFIZER INC-2012004880

PATIENT
  Sex: Female
  Weight: 54.9 kg

DRUGS (10)
  1. KLONOPIN [Concomitant]
     Indication: PAIN
     Dosage: 0.5 MG, UNK
     Route: 048
  2. NICOTINIC ACID AMIDE [Concomitant]
     Dosage: UNK
  3. MULTI-VITAMINS [Concomitant]
     Dosage: UNK
  4. CHANTIX [Suspect]
     Indication: SMOKING CESSATION THERAPY
     Dosage: 0.5 MG, DAILY
     Route: 048
     Dates: start: 20120101
  5. CHANTIX [Suspect]
     Dosage: UNK
     Route: 048
     Dates: end: 20120101
  6. PERCOCET [Concomitant]
     Indication: PAIN
     Dosage: UNK,EVERY 6 HOURS
     Route: 048
  7. METHADONE [Concomitant]
     Indication: PAIN
     Dosage: 5 MG, DAILY
     Route: 048
  8. CALCIUM CARBONATE/ERGOCALCIFEROL [Concomitant]
     Indication: OSTEOPOROSIS
     Dosage: 1000 MG, DAILY
     Route: 048
  9. ELAVIL [Concomitant]
     Indication: PAIN
     Dosage: 100 MG, DAILY
  10. VITAMIN B-12 [Concomitant]
     Dosage: UNK

REACTIONS (8)
  - THINKING ABNORMAL [None]
  - DEPRESSION [None]
  - FEELING ABNORMAL [None]
  - STRESS [None]
  - EMOTIONAL DISORDER [None]
  - ANXIETY [None]
  - IRRITABILITY [None]
  - TREMOR [None]
